FAERS Safety Report 9821614 (Version 1)
Quarter: 2014Q1

REPORT INFORMATION
  Report Type: Spontaneous
  Country: US (occurrence: US)
  Receive Date: 20140116
  Receipt Date: 20140116
  Transmission Date: 20141002
  Serious: No
  Sender: FDA-Public Use
  Company Number: US-BIOGENIDEC-2014BI000743

PATIENT
  Age: 64 Year
  Sex: Male

DRUGS (10)
  1. TECFIDERA [Suspect]
     Indication: MULTIPLE SCLEROSIS
     Route: 048
     Dates: start: 201312, end: 201312
  2. TECFIDERA [Suspect]
     Indication: MULTIPLE SCLEROSIS
     Route: 048
     Dates: start: 201312
  3. ZOCOR [Concomitant]
  4. FISH OIL [Concomitant]
  5. CENTRUM [Concomitant]
  6. GLUCOSAMINE SULFATE [Concomitant]
  7. LYCOPENE [Concomitant]
  8. VITAMIN D [Concomitant]
  9. ARTHROTEC [Concomitant]
  10. HYZAAR [Concomitant]

REACTIONS (2)
  - Fatigue [Unknown]
  - Gastrointestinal disorder [Unknown]
